FAERS Safety Report 8838944 (Version 2)
Quarter: 2014Q4

REPORT INFORMATION
  Report Type: Spontaneous
  Country: CL (occurrence: CL)
  Receive Date: 20121015
  Receipt Date: 20141224
  Transmission Date: 20150529
  Serious: Yes (Hospitalization)
  Sender: FDA-Public Use
  Company Number: CL-RANBAXY-2012R1-60859

PATIENT
  Age: 6 Year
  Sex: Female

DRUGS (1)
  1. OXCARBAZEPINE. [Suspect]
     Active Substance: OXCARBAZEPINE
     Indication: EPILEPSY
     Dosage: UNK
     Route: 065
     Dates: start: 200812

REACTIONS (4)
  - Septic shock [Unknown]
  - Pneumonia haemophilus [Recovered/Resolved]
  - Hypogammaglobulinaemia [Recovered/Resolved]
  - Immunodeficiency common variable [Recovered/Resolved]
